FAERS Safety Report 8802399 (Version 1)
Quarter: 2012Q4

REPORT INFORMATION
  Report Type: 
  Country: US (occurrence: US)
  Receive Date: 20120921
  Receipt Date: 20120921
  Transmission Date: 20130627
  Serious: Yes (Hospitalization, Other)
  Sender: FDA-Public Use
  Company Number: US-MERCK-2012SP015418

PATIENT
  Sex: Female

DRUGS (4)
  1. VICTRELIS [Suspect]
     Indication: HEPATITIS C
     Dosage: 800 mg, q8h
     Route: 048
     Dates: start: 20111102, end: 20120610
  2. REBETOL [Suspect]
     Dosage: 1000 mg, UNK
     Route: 048
     Dates: start: 20111005, end: 20120610
  3. REBETOL [Suspect]
     Dosage: 800 mg, QD
  4. PEGASYS [Concomitant]
     Indication: HEPATITIS C
     Dosage: 180 ?g, QW
     Route: 065
     Dates: start: 20111005, end: 20120610

REACTIONS (12)
  - Bone marrow failure [Unknown]
  - Asthenia [Unknown]
  - Confusional state [Unknown]
  - Blood potassium decreased [Unknown]
  - Migraine [Recovered/Resolved]
  - Mental impairment [Unknown]
  - Memory impairment [Unknown]
  - Emotional disorder [Unknown]
  - Disturbance in attention [Unknown]
  - Asthenia [Unknown]
  - Anaemia [Recovering/Resolving]
  - Diarrhoea [Unknown]
